FAERS Safety Report 5297300-2 (Version None)
Quarter: 2007Q2

REPORT INFORMATION
  Report Type: 
  Country: None (occurrence: None)
  Receive Date: 20070410
  Receipt Date: 20070410
  Transmission Date: 20071010
  Serious: Yes (Hospitalization)
  Sender: FDA-Public Use
  Company Number: None

PATIENT
  Sex: Female
  Weight: 53.5244 kg

DRUGS (1)
  1. INTRON A [Suspect]
     Indication: MALIGNANT MELANOMA
     Dosage: 18 MIU 3X WEEK SQ
     Route: 058
     Dates: start: 20061201, end: 20070326

REACTIONS (5)
  - ANOREXIA [None]
  - DEHYDRATION [None]
  - FATIGUE [None]
  - PAIN [None]
  - WEIGHT DECREASED [None]
